FAERS Safety Report 8988832 (Version 1)
Quarter: 2012Q4

REPORT INFORMATION
  Report Type: Spontaneous
  Country: US (occurrence: None)
  Receive Date: 20121224
  Receipt Date: 20121224
  Transmission Date: 20130627
  Serious: No
  Sender: FDA-Public Use
  Company Number: None

PATIENT
  Age: 69 Year
  Sex: Male
  Weight: 76.7 kg

DRUGS (2)
  1. DEPAKOTE SA 500MG [Suspect]
     Indication: PSYCHOSIS
     Route: 048
     Dates: start: 20121017, end: 20121018
  2. DEPAKOTE SA 500MG [Suspect]
     Indication: PSYCHOSIS
     Route: 048
     Dates: start: 20121019, end: 20121104

REACTIONS (1)
  - Blood sodium decreased [None]
